FAERS Safety Report 4270065-9 (Version None)
Quarter: 2004Q2

REPORT INFORMATION
  Report Type: 
  Country: None (occurrence: None)
  Receive Date: 20040114
  Receipt Date: 20030204
  Transmission Date: 20050107
  Serious: No
  Sender: FDA-Public Use
  Company Number: US-GLAXOSMITHKLINE-A0395449A

PATIENT
  Age: 59 Year
  Sex: Female

DRUGS (2)
  1. BUPROPION HCL [Suspect]
     Indication: DEPRESSION
     Dosage: 100MG IN THE MORNING
     Route: 048
     Dates: start: 20021025
  2. LUVOX [Concomitant]

REACTIONS (1)
  - HYPOAESTHESIA [None]
